FAERS Safety Report 4478113-8 (Version None)
Quarter: 2004Q3

REPORT INFORMATION
  Report Type: 
  Country: None (occurrence: None)
  Receive Date: 20040923
  Receipt Date: 20040625
  Transmission Date: 20050211
  Serious: No
  Sender: FDA-Public Use
  Company Number: USA040671194

PATIENT
  Age: 75 Year
  Sex: Female

DRUGS (15)
  1. FORTEO [Suspect]
     Indication: OSTEOPOROSIS
     Dates: start: 20040604
  2. HUMULIN 70/30 [Concomitant]
  3. HUMULIN R [Concomitant]
  4. FUROSEMIDE [Concomitant]
  5. NORVASC [Concomitant]
  6. ZOCOR [Concomitant]
  7. NITROGLYCERIN [Concomitant]
  8. PLAVIX [Concomitant]
  9. VITAMIN E [Concomitant]
  10. ZANTAC [Concomitant]
  11. MULTIVITAMIN [Concomitant]
  12. CALCIUM PLUS D [Concomitant]
  13. TYLENOL [Concomitant]
  14. CLONOPIN (CLONAZEPAM) [Concomitant]
  15. MINIPRESS [Concomitant]

REACTIONS (4)
  - ABDOMINAL DISTENSION [None]
  - FEELING ABNORMAL [None]
  - HEADACHE [None]
  - HYPERHIDROSIS [None]
